FAERS Safety Report 4840920-7 (Version None)
Quarter: 2005Q4

REPORT INFORMATION
  Report Type: 
  Country: None (occurrence: None)
  Receive Date: 20051027
  Receipt Date: 20041029
  Transmission Date: 20060501
  Serious: Yes (Hospitalization, Other)
  Sender: FDA-Public Use
  Company Number: HQWYE193601NOV04

PATIENT
  Sex: Female

DRUGS (6)
  1. PREMARIN [Suspect]
  2. ESTROGENS SOL/INJ [Suspect]
  3. MEDROXYPROGESTERONE [Suspect]
  4. PREMPHASE 14/14 [Suspect]
  5. PROGESTERONE [Suspect]
  6. PROVERA [Suspect]

REACTIONS (1)
  - BREAST CANCER [None]
